FAERS Safety Report 6282180-9 (Version None)
Quarter: 2009Q3

REPORT INFORMATION
  Report Type: 
  Country: None (occurrence: None)
  Receive Date: 20090724
  Receipt Date: 20090714
  Transmission Date: 20100115
  Serious: Yes (Hospitalization)
  Sender: FDA-Public Use
  Company Number: ES-PFIZER INC-2009243860

PATIENT
  Age: 67 Year

DRUGS (3)
  1. MORPHINE SULFATE [Suspect]
     Dosage: 20 MG, DAILY
     Route: 048
     Dates: start: 20090121, end: 20090208
  2. LYRICA [Suspect]
     Dosage: 150 MG, DAILY
     Route: 048
     Dates: start: 20090121, end: 20090208
  3. DURAGESIC-100 [Suspect]
     Indication: CANCER PAIN
     Dosage: 175 MCG , DAILY
     Route: 062
     Dates: start: 20090121, end: 20090208

REACTIONS (5)
  - BRONCHIAL SECRETION RETENTION [None]
  - BRONCHITIS [None]
  - DEPRESSED LEVEL OF CONSCIOUSNESS [None]
  - DRUG INTERACTION [None]
  - DYSPNOEA [None]
